FAERS Safety Report 4780909-X (Version None)
Quarter: 2005Q3

REPORT INFORMATION
  Report Type: 
  Country: None (occurrence: None)
  Receive Date: 20050927
  Receipt Date: 20050927
  Transmission Date: 20060218
  Serious: Yes (Other)
  Sender: FDA-Public Use
  Company Number: None

PATIENT
  Sex: Male
  Weight: 49.8957 kg

DRUGS (1)
  1. RISPERDAL [Suspect]
     Indication: ANOREXIA NERVOSA
     Dosage: 1.5 MG Q 12 H PO
     Dates: start: 20050830, end: 20050925

REACTIONS (1)
  - RESTLESSNESS [None]
